FAERS Safety Report 5085185-9 (Version None)
Quarter: 2006Q3

REPORT INFORMATION
  Report Type: 
  Country: None (occurrence: None)
  Receive Date: 20060822
  Receipt Date: 20060705
  Transmission Date: 20061208
  Serious: Yes (Hospitalization, Other)
  Sender: FDA-Public Use
  Company Number: NL-ABBOTT-06P-114-0337687-00

PATIENT
  Age: 33 Year
  Sex: Female

DRUGS (12)
  1. RITONAVIR SOFT GELATIN CAPSULES [Suspect]
     Indication: SYSTEMIC ANTIVIRAL TREATMENT
  2. KALETRA [Suspect]
     Indication: DRUG USE FOR UNKNOWN INDICATION
     Dates: start: 19960101
  3. TIPRANAVIR [Suspect]
     Indication: SYSTEMIC ANTIVIRAL TREATMENT
  4. NEVIRAPINE [Suspect]
     Indication: SYSTEMIC ANTIVIRAL TREATMENT
  5. ZIDOVUDINE [Suspect]
     Indication: SYSTEMIC ANTIVIRAL TREATMENT
  6. ZIDOVUDINE [Suspect]
  7. LAMIVUDINE [Suspect]
     Indication: SYSTEMIC ANTIVIRAL TREATMENT
  8. ABACAVIR [Suspect]
     Indication: SYSTEMIC ANTIVIRAL TREATMENT
  9. TENOFOVIR [Suspect]
     Indication: SYSTEMIC ANTIVIRAL TREATMENT
     Dates: start: 19960101
  10. ENFUVIRTIDE [Suspect]
     Indication: SYSTEMIC ANTIVIRAL TREATMENT
  11. DIDANOSINE [Suspect]
     Indication: SYSTEMIC ANTIVIRAL TREATMENT
  12. STAVUDINE [Concomitant]
     Indication: DRUG USE FOR UNKNOWN INDICATION
     Dates: start: 19960101

REACTIONS (5)
  - MEDICAL OBSERVATION [None]
  - NAUSEA [None]
  - PREMATURE RUPTURE OF MEMBRANES [None]
  - THERAPY NON-RESPONDER [None]
  - WEIGHT DECREASED [None]
